FAERS Safety Report 7333155-X (Version None)
Quarter: 2011Q1

REPORT INFORMATION
  Report Type: 
  Country: None (occurrence: None)
  Receive Date: 20110304
  Receipt Date: 20110223
  Transmission Date: 20110831
  Serious: Yes (Hospitalization, Other)
  Sender: FDA-Public Use
  Company Number: JP-ASTRAZENECA-2011SE09146

PATIENT
  Age: 46 Year
  Sex: Female

DRUGS (3)
  1. NELBON [Suspect]
     Route: 048
  2. SEROQUEL [Suspect]
     Route: 048
  3. PAXIL [Suspect]
     Route: 048

REACTIONS (3)
  - LOSS OF CONSCIOUSNESS [None]
  - OVERDOSE [None]
  - DEPRESSED LEVEL OF CONSCIOUSNESS [None]
